FAERS Safety Report 8361025-7 (Version None)
Quarter: 2012Q2

REPORT INFORMATION
  Report Type: 
  Country: None (occurrence: None)
  Receive Date: 20120515
  Receipt Date: 20120511
  Transmission Date: 20120825
  Serious: Yes (Hospitalization)
  Sender: FDA-Public Use
  Company Number: PHHY2012AR022480

PATIENT
  Sex: Male

DRUGS (2)
  1. DIOVAN [Suspect]
     Indication: HYPERTENSION
     Dosage: 160 MG, DAILY
     Dates: start: 20110101, end: 20120201
  2. LOSARTAN POTASSIUM [Concomitant]

REACTIONS (3)
  - CORONARY ARTERY DISEASE [None]
  - CHEST PAIN [None]
  - ABDOMINAL PAIN UPPER [None]
